FAERS Safety Report 5959194-9 (Version None)
Quarter: 2008Q4

REPORT INFORMATION
  Report Type: 
  Country: None (occurrence: None)
  Receive Date: 20081120
  Receipt Date: 20080708
  Transmission Date: 20090506
  Serious: No
  Sender: FDA-Public Use
  Company Number: A0731261A

PATIENT
  Age: 41 Year
  Sex: Female
  Weight: 86.4 kg

DRUGS (1)
  1. BUPROPION HYDROCHLORIDE [Suspect]
     Indication: ANXIETY
     Dosage: 150MG TWICE PER DAY
     Route: 048
     Dates: start: 20040503

REACTIONS (10)
  - ADVERSE EVENT [None]
  - DRUG INEFFECTIVE [None]
  - HEADACHE [None]
  - IRRITABILITY [None]
  - LETHARGY [None]
  - MENTAL IMPAIRMENT [None]
  - PARAESTHESIA [None]
  - PAROSMIA [None]
  - PRODUCT QUALITY ISSUE [None]
  - WITHDRAWAL SYNDROME [None]
